FAERS Safety Report 21108580 (Version 1)
Quarter: 2022Q3

REPORT INFORMATION
  Report Type: Spontaneous
  Country: NZ (occurrence: NZ)
  Receive Date: 20220721
  Receipt Date: 20220721
  Transmission Date: 20221027
  Serious: Yes (Death, Other)
  Sender: FDA-Public Use
  Company Number: NZ-BRISTOL-MYERS SQUIBB COMPANY-2022-077424

PATIENT
  Age: 70 Year
  Sex: Male
  Weight: 85 kg

DRUGS (58)
  1. AZACITIDINE [Suspect]
     Active Substance: AZACITIDINE
     Indication: Acute myeloid leukaemia
     Route: 042
     Dates: start: 20220502
  2. AZACITIDINE [Suspect]
     Active Substance: AZACITIDINE
     Route: 042
     Dates: start: 20220506, end: 20220508
  3. BGB-11417 [Suspect]
     Active Substance: BGB-11417
     Indication: Acute myeloid leukaemia
     Dosage: 20 MILLIGRAM, QD
     Route: 048
     Dates: start: 20220502
  4. BGB-11417 [Suspect]
     Active Substance: BGB-11417
     Dosage: 160 MILLIGRAM, QD
     Route: 048
     Dates: start: 20220505, end: 20220511
  5. LOPERAMIDE [Concomitant]
     Active Substance: LOPERAMIDE
     Indication: Diarrhoea
     Route: 048
     Dates: start: 2022
  6. LOPERAMIDE [Concomitant]
     Active Substance: LOPERAMIDE
     Indication: Product used for unknown indication
  7. MAGNESIUM SULFATE [Concomitant]
     Active Substance: MAGNESIUM SULFATE
     Indication: Prophylaxis
     Route: 042
     Dates: start: 20220510, end: 20220510
  8. MAGNESIUM SULFATE [Concomitant]
     Active Substance: MAGNESIUM SULFATE
     Indication: Product used for unknown indication
  9. GRANULOCYTE COLONY-STIMULATING FACTOR NOS [Concomitant]
     Active Substance: GRANULOCYTE COLONY-STIMULATING FACTOR NOS
     Indication: Neutrophil count decreased
     Route: 058
     Dates: start: 20220517, end: 20220517
  10. GRANULOCYTE COLONY-STIMULATING FACTOR NOS [Concomitant]
     Active Substance: GRANULOCYTE COLONY-STIMULATING FACTOR NOS
     Indication: Product used for unknown indication
  11. GENTAMICIN [Concomitant]
     Active Substance: GENTAMICIN
     Indication: Perineal abscess
     Route: 042
     Dates: start: 20220517, end: 20220517
  12. GENTAMICIN [Concomitant]
     Active Substance: GENTAMICIN
     Indication: Product used for unknown indication
  13. PIPERACILLIN AND TAZOBACTAM [Concomitant]
     Active Substance: PIPERACILLIN SODIUM\TAZOBACTAM SODIUM
     Indication: Perineal abscess
     Route: 042
     Dates: start: 20220517, end: 20220517
  14. PIPERACILLIN AND TAZOBACTAM [Concomitant]
     Active Substance: PIPERACILLIN SODIUM\TAZOBACTAM SODIUM
     Indication: Product used for unknown indication
  15. MEROPENEM [Concomitant]
     Active Substance: MEROPENEM
     Indication: Perineal abscess
     Route: 042
     Dates: start: 20220517, end: 20220518
  16. MEROPENEM [Concomitant]
     Active Substance: MEROPENEM
     Indication: Product used for unknown indication
  17. TRANEXAMIC ACID [Concomitant]
     Active Substance: TRANEXAMIC ACID
     Indication: Platelet count decreased
     Route: 042
     Dates: start: 20220517
  18. TRANEXAMIC ACID [Concomitant]
     Active Substance: TRANEXAMIC ACID
     Indication: Product used for unknown indication
  19. SODIUM CHLORIDE [Concomitant]
     Active Substance: SODIUM CHLORIDE
     Indication: Prophylaxis against dehydration
     Route: 042
     Dates: start: 20220517, end: 20220518
  20. SODIUM CHLORIDE [Concomitant]
     Active Substance: SODIUM CHLORIDE
     Indication: Product used for unknown indication
  21. MARCAINE WITH ADRENALINE [Concomitant]
     Indication: Perineal abscess
     Route: 061
     Dates: start: 20220517, end: 20220517
  22. MARCAINE WITH ADRENALINE [Concomitant]
     Indication: Product used for unknown indication
  23. CEFUROXIME [Concomitant]
     Active Substance: CEFUROXIME
     Indication: Perineal abscess
     Dosage: UNK
     Route: 042
     Dates: start: 20220518, end: 20220523
  24. CEFUROXIME [Concomitant]
     Active Substance: CEFUROXIME
     Indication: Product used for unknown indication
     Dosage: UNK
     Route: 048
     Dates: start: 20220525
  25. VANCOMYCIN [Concomitant]
     Active Substance: VANCOMYCIN
     Indication: Perineal abscess
     Dosage: UNK
     Route: 042
     Dates: start: 20220519, end: 20220523
  26. VANCOMYCIN [Concomitant]
     Active Substance: VANCOMYCIN
     Indication: Product used for unknown indication
     Dosage: UNK
     Route: 042
     Dates: start: 20220523
  27. FENTANYL [Concomitant]
     Active Substance: FENTANYL
     Indication: Abscess drainage
     Route: 042
     Dates: start: 20220517, end: 20220517
  28. FENTANYL [Concomitant]
     Active Substance: FENTANYL
     Indication: Product used for unknown indication
  29. METARAMINOL [Concomitant]
     Active Substance: METARAMINOL
     Indication: Abscess drainage
     Route: 042
     Dates: start: 20220517, end: 20220517
  30. METARAMINOL [Concomitant]
     Active Substance: METARAMINOL
     Indication: Product used for unknown indication
  31. PROPOFOL [Concomitant]
     Active Substance: PROPOFOL
     Indication: Abscess drainage
     Route: 042
     Dates: start: 20220517, end: 20220517
  32. PROPOFOL [Concomitant]
     Active Substance: PROPOFOL
     Indication: Product used for unknown indication
  33. ELECTROLYTES NOS [Concomitant]
     Active Substance: ELECTROLYTES NOS
     Indication: Abscess drainage
     Route: 042
     Dates: start: 20220517, end: 20220517
  34. ELECTROLYTES NOS [Concomitant]
     Active Substance: ELECTROLYTES NOS
     Indication: Product used for unknown indication
  35. MORPHINE [Concomitant]
     Active Substance: MORPHINE
     Indication: Perineal abscess
     Route: 048
     Dates: start: 202205
  36. MORPHINE [Concomitant]
     Active Substance: MORPHINE
     Indication: Product used for unknown indication
  37. CYCLIZINE [Concomitant]
     Active Substance: CYCLIZINE
     Indication: Prophylaxis of nausea and vomiting
     Route: 048
     Dates: start: 20220518
  38. CYCLIZINE [Concomitant]
     Active Substance: CYCLIZINE
     Indication: Product used for unknown indication
  39. SCOPOLAMINE [Concomitant]
     Active Substance: SCOPOLAMINE
     Indication: Prophylaxis of nausea and vomiting
     Route: 062
     Dates: start: 20220520
  40. SCOPOLAMINE [Concomitant]
     Active Substance: SCOPOLAMINE
     Indication: Product used for unknown indication
  41. DOXYCYCLINE [Concomitant]
     Active Substance: DOXYCYCLINE
     Indication: Perineal abscess
     Route: 048
     Dates: start: 20220503, end: 20220518
  42. DOXYCYCLINE [Concomitant]
     Active Substance: DOXYCYCLINE
     Indication: Product used for unknown indication
  43. AUGMENTIN [Concomitant]
     Active Substance: AMOXICILLIN\CLAVULANATE POTASSIUM
     Indication: Perineal abscess
     Route: 048
     Dates: start: 20220425, end: 20220430
  44. CLINDAMYCIN [Concomitant]
     Active Substance: CLINDAMYCIN
     Indication: Abscess
     Route: 048
     Dates: start: 20220426, end: 20220430
  45. CIPROFLOXACIN [Concomitant]
     Active Substance: CIPROFLOXACIN
     Indication: Abscess
     Route: 048
     Dates: start: 20220426, end: 20220428
  46. ALLOPURINOL [Concomitant]
     Active Substance: ALLOPURINOL
     Indication: Prophylaxis
     Route: 048
     Dates: start: 20220502
  47. ALLOPURINOL [Concomitant]
     Active Substance: ALLOPURINOL
     Indication: Product used for unknown indication
  48. METOCLOPRAMIDE [Concomitant]
     Active Substance: METOCLOPRAMIDE
     Indication: Prophylaxis of nausea and vomiting
     Route: 048
     Dates: start: 20220502
  49. METOCLOPRAMIDE [Concomitant]
     Active Substance: METOCLOPRAMIDE
     Indication: Product used for unknown indication
  50. ONDANSETRON [Concomitant]
     Active Substance: ONDANSETRON
     Indication: Prophylaxis of nausea and vomiting
     Route: 048
     Dates: start: 20220502
  51. ONDANSETRON [Concomitant]
     Active Substance: ONDANSETRON
     Indication: Product used for unknown indication
  52. ENSURE [Concomitant]
     Active Substance: AMINO ACIDS\DEXTROSE\ELECTROLYTES NOS\SOYBEAN OIL\VITAMINS
     Indication: Decreased appetite
     Dosage: UNK
     Route: 048
     Dates: start: 202205, end: 20220608
  53. ATORVASTATIN [Concomitant]
     Active Substance: ATORVASTATIN
     Indication: Product used for unknown indication
     Dates: start: 20120306
  54. FUROSEMIDE [Concomitant]
     Active Substance: FUROSEMIDE
     Indication: Product used for unknown indication
     Dates: start: 20220518
  55. OMEPRAZOLE [Concomitant]
     Active Substance: OMEPRAZOLE
     Indication: Product used for unknown indication
     Dates: start: 20220506
  56. ASPIRIN [Concomitant]
     Active Substance: ASPIRIN
     Indication: Product used for unknown indication
     Dates: start: 201109
  57. METFORMIN [Concomitant]
     Active Substance: METFORMIN HYDROCHLORIDE
     Indication: Product used for unknown indication
     Dates: start: 202203
  58. ACETAMINOPHEN [Concomitant]
     Active Substance: ACETAMINOPHEN
     Indication: Product used for unknown indication
     Dates: start: 202205

REACTIONS (1)
  - Death [Fatal]

NARRATIVE: CASE EVENT DATE: 20220614
